FAERS Safety Report 18377878 (Version 2)
Quarter: 2020Q4

REPORT INFORMATION
  Report Type: Spontaneous
  Country: AU (occurrence: AU)
  Receive Date: 20201013
  Receipt Date: 20201102
  Transmission Date: 20210114
  Serious: Yes (Hospitalization, Other)
  Sender: FDA-Public Use
  Company Number: AU-GLAXOSMITHKLINE-AU2020GSK195764

PATIENT
  Age: 46 Year
  Sex: Male

DRUGS (2)
  1. PROCHLORPERAZINE. [Concomitant]
     Active Substance: PROCHLORPERAZINE
     Indication: VERTIGO POSITIONAL
     Dosage: 25 MG
     Route: 042
  2. SCOPOLAMINE [Suspect]
     Active Substance: SCOPOLAMINE
     Indication: MOTION SICKNESS
     Dosage: 1 MG/ 3 DAYS
     Route: 062

REACTIONS (2)
  - Nausea [Unknown]
  - Drug withdrawal syndrome [Recovered/Resolved]
